FAERS Safety Report 21008947 (Version 1)
Quarter: 2022Q2

REPORT INFORMATION
  Report Type: Spontaneous
  Country: US (occurrence: None)
  Receive Date: 20220627
  Receipt Date: 20220627
  Transmission Date: 20220720
  Serious: No
  Sender: FDA-Public Use
  Company Number: None

PATIENT
  Age: 31 Year
  Sex: Male
  Weight: 66.15 kg

DRUGS (4)
  1. DEXTROAMPHET SACCHARAT, AMPHET ASPARTATE, DEXTROAMPHET SULFATE AND AMP [Suspect]
     Active Substance: AMPHETAMINE ASPARTATE\AMPHETAMINE SULFATE\DEXTROAMPHETAMINE SACCHARATE\DEXTROAMPHETAMINE SULFATE
     Indication: Attention deficit hyperactivity disorder
     Dosage: 1 CAPSULE ORAL?
     Route: 048
     Dates: start: 20220602
  2. DEXTROAMPHET SACCHARAT, AMPHET ASPARTATE, DEXTROAMPHET SULFATE AND AMP [Suspect]
     Active Substance: AMPHETAMINE ASPARTATE\AMPHETAMINE SULFATE\DEXTROAMPHETAMINE SACCHARATE\DEXTROAMPHETAMINE SULFATE
     Indication: Attention deficit hyperactivity disorder
     Dosage: OTHER QUANTITY : 1 CAPSULE(S)? ?
     Route: 048
     Dates: start: 20220509, end: 20220611
  3. Albuterol sulfate prn (less than 20 puffs per year) [Concomitant]
  4. Nicorette 4mg prn [Concomitant]

REACTIONS (9)
  - Weight decreased [None]
  - Heart rate increased [None]
  - Insomnia [None]
  - Therapy change [None]
  - Chromaturia [None]
  - Therapeutic product effect incomplete [None]
  - Urine flow decreased [None]
  - Decreased appetite [None]
  - Micturition frequency decreased [None]

NARRATIVE: CASE EVENT DATE: 20220513
